FAERS Safety Report 24726669 (Version 1)
Quarter: 2024Q4

REPORT INFORMATION
  Report Type: Spontaneous
  Country: US (occurrence: US)
  Receive Date: 20241212
  Receipt Date: 20241212
  Transmission Date: 20250115
  Serious: No
  Sender: ROCHE
  Company Number: US-ROCHE-10000152476

PATIENT
  Age: 43 Year
  Sex: Male

DRUGS (1)
  1. RITUXAN [Suspect]
     Active Substance: RITUXIMAB
     Indication: Product used for unknown indication
     Dosage: RITUXAN SDV 100MG/10ML
     Route: 042

REACTIONS (3)
  - Asthenia [Unknown]
  - Pain [Unknown]
  - Poor quality sleep [Unknown]
